FAERS Safety Report 10214975 (Version 1)
Quarter: 2014Q1

REPORT INFORMATION
  Report Type: Spontaneous
  Country: US (occurrence: None)
  Receive Date: 20140306
  Receipt Date: 20140306
  Transmission Date: 20141002
  Serious: Yes (Other)
  Sender: FDA-Public Use
  Company Number: 163-21880-11043747

PATIENT
  Age: 81 Year
  Sex: Male
  Weight: 70.3 kg

DRUGS (9)
  1. REVLIMID (LENALIDOMIDE) (CAPSULES) [Suspect]
     Indication: MYELODYSPLASTIC SYNDROME
     Dosage: NOT PROVIDED, PO
     Route: 048
     Dates: start: 2007
  2. PRAVACHOL (PRAVASTATIN SODIUM) (TABLETS) [Concomitant]
  3. CITALOPRAM HBR (CITALOPRAM HYDROBROMIDE) (TABLETS) [Concomitant]
  4. ASPIRIN (ACETYLSALICYLIC ACID) (ENTERIC-COATED TABLET) [Concomitant]
  5. METOPROLOL TARTRATE (METOPROLOL TARTRATE) (TABLETS) (METOPROLOL TARTRATE) [Concomitant]
  6. ALLOPURINOL (ALLOPURINOL) (TABLETS) [Concomitant]
  7. MULTIVITAMINS (MULTIVITAMINS) (TABLETS) [Concomitant]
  8. PRILOSEC OTC (OMEPRAZOLE) (TABLETS) [Concomitant]
  9. VITAMIN D3 (COLECALCIFEROL) (TABLETS) [Concomitant]

REACTIONS (2)
  - Diarrhoea [None]
  - Adverse drug reaction [None]
